FAERS Safety Report 15540561 (Version 1)
Quarter: 2018Q4

REPORT INFORMATION
  Report Type: Spontaneous
  Country: ZA (occurrence: ZA)
  Receive Date: 20181023
  Receipt Date: 20181023
  Transmission Date: 20190205
  Serious: Yes (Life-Threatening, Other)
  Sender: FDA-Public Use
  Company Number: ZA-ACCORD-073722

PATIENT
  Age: 48 Year
  Sex: Female

DRUGS (5)
  1. APREPITANT. [Concomitant]
     Active Substance: APREPITANT
     Indication: NAUSEA
     Dosage: 125 MG DAY 1
     Route: 048
     Dates: start: 20180920, end: 20180922
  2. OXALIPLATIN INTAS [Suspect]
     Active Substance: OXALIPLATIN
     Indication: COLON CANCER
     Route: 042
     Dates: start: 20180920, end: 20180920
  3. GRANISETRON/GRANISETRON HYDROCHLORIDE [Concomitant]
     Indication: NAUSEA
     Dosage: 3 MG/3 ML (3 MG ONCE)
     Route: 042
     Dates: start: 20180920, end: 20180920
  4. GRANULOCYTE COLONY STIMULATING [Concomitant]
     Active Substance: GRANULOCYTE COLONY-STIMULATING FACTOR NOS
     Indication: NEUTROPENIA
     Dosage: 48 MUNIT
     Route: 058
  5. PECASET ACCORD [Suspect]
     Active Substance: CAPECITABINE
     Indication: COLON CANCER
     Dosage: STRENGTH: PECASET 500 MG TABS X 1500 MG B.D.
     Dates: start: 20180920, end: 20180922

REACTIONS (3)
  - Renal failure [Not Recovered/Not Resolved]
  - Anaphylactic reaction [Recovered/Resolved]
  - Neutropenia [Not Recovered/Not Resolved]

NARRATIVE: CASE EVENT DATE: 20180920
